FAERS Safety Report 13006831 (Version 1)
Quarter: 2016Q4

REPORT INFORMATION
  Report Type: Spontaneous
  Country: US (occurrence: US)
  Receive Date: 20161207
  Receipt Date: 20161207
  Transmission Date: 20170207
  Serious: No
  Sender: FDA-Public Use
  Company Number: US-MISSION PHARMACAL COMPANY-1060529

PATIENT
  Age: 53 Year
  Sex: Male

DRUGS (1)
  1. THIOLA [Suspect]
     Active Substance: TIOPRONIN
     Indication: CYSTINOSIS
     Route: 065
     Dates: start: 20141017

REACTIONS (3)
  - Drug ineffective [Recovered/Resolved]
  - Viral infection [Unknown]
  - Myalgia [Unknown]
